FAERS Safety Report 8533366 (Version 7)
Quarter: 2013Q1

REPORT INFORMATION
  Report Type: Report from Study
  Country: US (occurrence: US)
  Receive Date: 20120427
  Receipt Date: 20130117
  Transmission Date: 20140127
  Serious: Yes (Hospitalization, Other)
  Sender: FDA-Public Use
  Company Number: US-MYLANLABS-2012S1008085

PATIENT
  Age: 27 Year
  Sex: Female
  Weight: 104.33 kg

DRUGS (1)
  1. AMNESTEEM CAPSULES [Suspect]
     Route: 048
     Dates: start: 20111114, end: 20120115

REACTIONS (7)
  - Maternal exposure before pregnancy [Recovered/Resolved]
  - Premature labour [Recovered/Resolved]
  - Arrested labour [Recovered/Resolved]
  - Gestational diabetes [Recovered/Resolved]
  - Vomiting [Recovered/Resolved]
  - Nausea [Recovered/Resolved]
  - Normal newborn [Recovered/Resolved]
